FAERS Safety Report 16826244 (Version 1)
Quarter: 2019Q3

REPORT INFORMATION
  Report Type: Spontaneous
  Country: US (occurrence: US)
  Receive Date: 20190729
  Receipt Date: 20190729
  Transmission Date: 20191005
  Serious: Yes (Hospitalization)
  Sender: FDA-Public Use
  Company Number: None

PATIENT
  Age: 78 Year
  Sex: Female

DRUGS (2)
  1. OCTREOTIDE VIAL 100MCG/ML [Suspect]
     Active Substance: OCTREOTIDE
     Indication: CARCINOID TUMOUR
     Route: 058
  2. ALPRAZOLAM. [Concomitant]
     Active Substance: ALPRAZOLAM

REACTIONS (2)
  - Head discomfort [None]
  - Muscle spasms [None]

NARRATIVE: CASE EVENT DATE: 20190726
